FAERS Safety Report 7465157-7 (Version None)
Quarter: 2011Q2

REPORT INFORMATION
  Report Type: 
  Country: None (occurrence: None)
  Receive Date: 20110509
  Receipt Date: 20110427
  Transmission Date: 20111010
  Serious: Yes (Life-Threatening, Hospitalization, Other)
  Sender: FDA-Public Use
  Company Number: JP-CELGENEUS-087-21660-11042642

PATIENT
  Age: 57 Year
  Sex: Female
  Weight: 55 kg

DRUGS (6)
  1. ZOSYN [Concomitant]
     Indication: PROPHYLAXIS
     Route: 041
     Dates: start: 20110219, end: 20110228
  2. GRANISETRON HCL [Concomitant]
     Dosage: 3 MILLIGRAM
     Route: 041
     Dates: start: 20110217, end: 20110217
  3. GRAN [Concomitant]
     Indication: PROPHYLAXIS
     Route: 058
     Dates: start: 20110219
  4. GRAN [Concomitant]
     Dosage: 75 MICROGRAM
     Route: 065
     Dates: start: 20110221
  5. DEXART [Concomitant]
     Dosage: 1.65 MILLIGRAM
     Route: 041
     Dates: start: 20110217, end: 20110217
  6. ABRAXANE [Suspect]
     Indication: BREAST CANCER
     Dosage: 300 MILLIGRAM
     Route: 041
     Dates: start: 20110217, end: 20110217

REACTIONS (3)
  - WHITE BLOOD CELL COUNT DECREASED [None]
  - NEUTROPHIL COUNT DECREASED [None]
  - ENTERITIS INFECTIOUS [None]
